FAERS Safety Report 6509549-9 (Version None)
Quarter: 2009Q4

REPORT INFORMATION
  Report Type: 
  Country: None (occurrence: None)
  Receive Date: 20091222
  Receipt Date: 20091217
  Transmission Date: 20100525
  Serious: Yes (Other)
  Sender: FDA-Public Use
  Company Number: US-B.I. PHARMACEUTICALS,INC./RIDGEFIELD-2009-BP-14607BP

PATIENT
  Sex: Female

DRUGS (7)
  1. SPIRIVA [Suspect]
     Indication: CHRONIC OBSTRUCTIVE PULMONARY DISEASE
     Dosage: 18 MCG
     Route: 055
     Dates: start: 20090401
  2. ADVAIR DISKUS 100/50 [Concomitant]
     Indication: CHRONIC OBSTRUCTIVE PULMONARY DISEASE
  3. LEXAPRO [Concomitant]
     Indication: DEPRESSION
  4. LIBRIUM [Concomitant]
     Indication: ANXIETY
  5. VITAMIN B COMPLEX CAP [Concomitant]
     Indication: SUPPLEMENTATION THERAPY
  6. ASCORBIC ACID [Concomitant]
     Indication: SUPPLEMENTATION THERAPY
  7. MULTI-VITAMIN [Concomitant]
     Indication: SUPPLEMENTATION THERAPY

REACTIONS (7)
  - BIPOLAR DISORDER [None]
  - GINGIVAL DISORDER [None]
  - HYPERTENSION [None]
  - PULMONARY OEDEMA [None]
  - TENDONITIS [None]
  - TOOTH LOSS [None]
  - TRIGGER FINGER [None]
